FAERS Safety Report 4738766-3 (Version None)
Quarter: 2005Q3

REPORT INFORMATION
  Report Type: 
  Country: None (occurrence: None)
  Receive Date: 20050808
  Receipt Date: 20050808
  Transmission Date: 20060218
  Serious: Yes (Other)
  Sender: FDA-Public Use
  Company Number: None

PATIENT
  Sex: Female
  Weight: 106.5953 kg

DRUGS (7)
  1. ZOLOFT [Suspect]
     Indication: DEPRESSION
     Dosage: 50 MG. ONCE DAILY ORAL
     Route: 048
     Dates: start: 19920101, end: 20050415
  2. STRATTERA [Suspect]
     Indication: ATTENTION DEFICIT/HYPERACTIVITY DISORDER
     Dosage: 100 MG. ONCE DAILY ORAL
     Route: 048
     Dates: start: 20050523, end: 20050801
  3. LAMICTAL [Concomitant]
  4. KLONOPIN [Concomitant]
  5. DEPAKOTE [Concomitant]
  6. COUMADIN [Concomitant]
  7. ATENALOL [Concomitant]

REACTIONS (2)
  - ALOPECIA [None]
  - HYPOTRICHOSIS [None]
